FAERS Safety Report 5746568-4 (Version None)
Quarter: 2008Q2

REPORT INFORMATION
  Report Type: 
  Country: None (occurrence: None)
  Receive Date: 20080522
  Receipt Date: 20080514
  Transmission Date: 20081010
  Serious: Yes (Other)
  Sender: FDA-Public Use
  Company Number: CA-MERCK-0805CAN00070

PATIENT
  Age: 51 Year
  Sex: Female
  Weight: 82 kg

DRUGS (1)
  1. COZAAR [Suspect]
     Indication: ESSENTIAL HYPERTENSION
     Route: 048

REACTIONS (1)
  - NAIL INFECTION [None]
